FAERS Safety Report 8258423-9 (Version None)
Quarter: 2012Q1

REPORT INFORMATION
  Report Type: 
  Country: None (occurrence: None)
  Receive Date: 20120322
  Receipt Date: 20111228
  Transmission Date: 20120608
  Serious: Yes (Hospitalization)
  Sender: FDA-Public Use
  Company Number: UTC-013981

PATIENT
  Age: 44 Year
  Sex: Male
  Weight: 136.8 kg

DRUGS (5)
  1. COUMADIN [Concomitant]
  2. TYVASO [Suspect]
     Indication: PULMONARY ARTERIAL HYPERTENSION
     Dosage: 216 MCG (54 MCG, 4 IN 1 D),INHALATION
     Route: 055
     Dates: start: 20110706
  3. REVATIO [Concomitant]
  4. DIURETICS (DIURETICS) [Concomitant]
  5. LETAIRIS [Concomitant]

REACTIONS (3)
  - COUGH [None]
  - PULMONARY ARTERIAL HYPERTENSION [None]
  - THROAT IRRITATION [None]
